FAERS Safety Report 21381241 (Version 1)
Quarter: 2022Q3

REPORT INFORMATION
  Report Type: Spontaneous
  Country: US (occurrence: None)
  Receive Date: 20220926
  Receipt Date: 20220926
  Transmission Date: 20221027
  Serious: Yes (Other)
  Sender: FDA-Public Use
  Company Number: None

PATIENT
  Age: 73 Year
  Sex: Female
  Weight: 87.75 kg

DRUGS (6)
  1. EXEMESTANE [Suspect]
     Active Substance: EXEMESTANE
     Indication: Breast cancer
     Dosage: FREQUENCY : DAILY;?
     Route: 048
     Dates: start: 20220924, end: 20220925
  2. LISINOPRIL [Concomitant]
     Active Substance: LISINOPRIL
  3. CLONAZEPAM [Concomitant]
     Active Substance: CLONAZEPAM
  4. vitamins B [Concomitant]
  5. vitamins D 4 [Concomitant]
  6. TYLENOL [Concomitant]
     Active Substance: ACETAMINOPHEN

REACTIONS (15)
  - Chills [None]
  - Nausea [None]
  - Asthenia [None]
  - Peripheral coldness [None]
  - Pruritus [None]
  - Arthralgia [None]
  - Joint swelling [None]
  - Paraesthesia [None]
  - Glossodynia [None]
  - Headache [None]
  - Influenza like illness [None]
  - Hypothermia [None]
  - Diarrhoea [None]
  - Fatigue [None]
  - Hypertension [None]

NARRATIVE: CASE EVENT DATE: 20220924
